FAERS Safety Report 9467941 (Version 3)
Quarter: 2013Q3

REPORT INFORMATION
  Report Type: Report from Study
  Country: FR (occurrence: FR)
  Receive Date: 20130821
  Receipt Date: 20130913
  Transmission Date: 20140515
  Serious: Yes (Hospitalization)
  Sender: FDA-Public Use
  Company Number: FR-VERTEX PHARMACEUTICALS INC-2013-008919

PATIENT
  Age: 55 Year
  Sex: Male
  Weight: 93 kg

DRUGS (7)
  1. TELAPREVIR [Suspect]
     Indication: HEPATITIS C
     Dosage: 1125 MG, TID, TABLET
     Route: 048
     Dates: start: 20130523, end: 20130807
  2. TELAPREVIR [Suspect]
     Indication: HEPATIC CIRRHOSIS
  3. PEGINTERFERON ALFA-2A [Suspect]
     Indication: HEPATIC CIRRHOSIS
     Dosage: DOSAGE FORM: INJECTION
     Route: 058
     Dates: start: 20130523
  4. PEGINTERFERON ALFA-2A [Suspect]
     Indication: HEPATITIS C
     Dosage: DOSAGE FORM: INJECTION
     Route: 058
     Dates: start: 20130808
  5. RIBAVIRIN [Suspect]
     Indication: HEPATIC CIRRHOSIS
     Dosage: DOSAGE FORM: UNSPECIFIED
     Route: 048
     Dates: start: 20130523, end: 20130809
  6. RIBAVIRIN [Suspect]
     Indication: HEPATITIS C
     Dosage: DOSAGE FORM: UNSPECIFIED, 200MG IN THE MORNING AND 400 IN THE EVENING
     Route: 048
     Dates: start: 20130809
  7. DEROXAT [Concomitant]
     Indication: DEPRESSION
     Dosage: DOSAGE FORM: UNSPECIFIED
     Route: 065
     Dates: start: 20130813

REACTIONS (8)
  - Pyrexia [Recovered/Resolved]
  - Pancytopenia [Unknown]
  - Lymphopenia [Unknown]
  - Toxic skin eruption [Recovered/Resolved]
  - Anaemia [Unknown]
  - Injection site reaction [Unknown]
  - Incorrect dose administered [Recovered/Resolved]
  - Lichen planus [Unknown]
